FAERS Safety Report 17230841 (Version 1)
Quarter: 2020Q1

REPORT INFORMATION
  Report Type: Spontaneous
  Country: NL (occurrence: NL)
  Receive Date: 20200103
  Receipt Date: 20200103
  Transmission Date: 20200409
  Serious: Yes (Other)
  Sender: FDA-Public Use
  Company Number: NL-MYLANLABS-2019M1132663

PATIENT
  Sex: Male
  Weight: 74 kg

DRUGS (4)
  1. METFORMIN [Suspect]
     Active Substance: METFORMIN HYDROCHLORIDE
     Indication: DIABETES MELLITUS
     Dosage: 1XPD 500
     Route: 048
     Dates: start: 201801, end: 201906
  2. ANDROGEL [Concomitant]
     Active Substance: TESTOSTERONE
     Dosage: 1X P 2DGN 25 MGR
     Dates: start: 201609
  3. LEVOTHYROXINE. [Concomitant]
     Active Substance: LEVOTHYROXINE
     Dosage: 1X PD 50 MICRGR
     Dates: start: 201609
  4. ROSUVASTATINE                      /01588601/ [Concomitant]
     Active Substance: ROSUVASTATIN
     Dosage: 1XPD 10 MGR
     Dates: end: 201906

REACTIONS (5)
  - Emotional poverty [Recovered/Resolved]
  - Depressed level of consciousness [Recovered/Resolved]
  - Pyrexia [Recovered/Resolved]
  - Oedema peripheral [Recovered/Resolved]
  - Haematoma [Recovered/Resolved]
